FAERS Safety Report 20154082 (Version 2)
Quarter: 2021Q4

REPORT INFORMATION
  Report Type: Other
  Country: US (occurrence: US)
  Receive Date: 20211207
  Receipt Date: 20211231
  Transmission Date: 20220303
  Serious: No
  Sender: FDA-Public Use
  Company Number: US-NEUROCRINE BIOSCIENCES INC.-2021NBI06999

PATIENT

DRUGS (3)
  1. INGREZZA [Suspect]
     Active Substance: VALBENAZINE
     Indication: Tardive dyskinesia
     Dosage: 60 MILLIGRAM, QD
     Route: 048
     Dates: start: 20211201
  2. INGREZZA [Suspect]
     Active Substance: VALBENAZINE
     Indication: Tremor
     Dosage: 40 MILLIGRAM, QD
     Route: 048
     Dates: start: 20211014, end: 20211130
  3. INGREZZA [Suspect]
     Active Substance: VALBENAZINE
     Indication: Dyskinesia

REACTIONS (3)
  - Vision blurred [Not Recovered/Not Resolved]
  - Drug ineffective for unapproved indication [Unknown]
  - Off label use [Unknown]

NARRATIVE: CASE EVENT DATE: 20210101
